FAERS Safety Report 7935219-6 (Version None)
Quarter: 2011Q4

REPORT INFORMATION
  Report Type: 
  Country: None (occurrence: None)
  Receive Date: 20111122
  Receipt Date: 20111121
  Transmission Date: 20120403
  Serious: Yes (Hospitalization)
  Sender: FDA-Public Use
  Company Number: GB-TEVA-221295ISR

PATIENT
  Age: 62 Year
  Sex: Female

DRUGS (3)
  1. CHLORAL HYDRATE [Suspect]
  2. ACETAMINOPHEN W/ CODEINE [Suspect]
  3. DIAZEPAM [Suspect]

REACTIONS (8)
  - AREFLEXIA [None]
  - CEREBROVASCULAR ACCIDENT [None]
  - OVERDOSE [None]
  - SUICIDE ATTEMPT [None]
  - MULTIPLE DRUG OVERDOSE [None]
  - LOSS OF CONSCIOUSNESS [None]
  - HEMIPARESIS [None]
  - OBSTRUCTIVE AIRWAYS DISORDER [None]
